FAERS Safety Report 9594378 (Version 1)
Quarter: 2013Q3

REPORT INFORMATION
  Report Type: Spontaneous
  Country: US (occurrence: None)
  Receive Date: 20130927
  Receipt Date: 20130927
  Transmission Date: 20140515
  Serious: No
  Sender: FDA-Public Use
  Company Number: CABO-13003072

PATIENT
  Age: 88 Year
  Sex: Male

DRUGS (1)
  1. COMETRIQ [Suspect]
     Indication: PROSTATE CANCER
     Dosage: 60 MG, QD, ORAL
     Route: 048
     Dates: start: 20130309, end: 20130726

REACTIONS (1)
  - Hospitalisation [None]
